FAERS Safety Report 7718430-9 (Version None)
Quarter: 2011Q3

REPORT INFORMATION
  Report Type: 
  Country: None (occurrence: None)
  Receive Date: 20110830
  Receipt Date: 20110826
  Transmission Date: 20111222
  Serious: No
  Sender: FDA-Public Use
  Company Number: US-PFIZER INC-2011199684

PATIENT
  Age: 70 Year
  Sex: Female
  Weight: 90.7 kg

DRUGS (4)
  1. LYRICA [Suspect]
     Indication: PAIN IN EXTREMITY
     Dosage: 50 MG, 2X/DAY
     Dates: start: 20110825
  2. COUMADIN [Concomitant]
     Indication: PULMONARY EMBOLISM
     Dosage: 5 MG, 1X/DAY
  3. DILANTIN [Concomitant]
     Indication: EPILEPSY
     Dosage: UNK
  4. COUMADIN [Concomitant]
     Dosage: 7.5 MG, 1X/DAY

REACTIONS (3)
  - DIZZINESS [None]
  - PARAESTHESIA [None]
  - FEELING ABNORMAL [None]
